FAERS Safety Report 13690123 (Version 1)
Quarter: 2017Q2

REPORT INFORMATION
  Report Type: Spontaneous
  Country: US (occurrence: US)
  Receive Date: 20170626
  Receipt Date: 20170626
  Transmission Date: 20170830
  Serious: Yes (Death)
  Sender: FDA-Public Use
  Company Number: US-NOVOPROD-550603

PATIENT
  Sex: Female

DRUGS (2)
  1. NOVOSEVEN RT [Suspect]
     Active Substance: COAGULATION FACTOR VIIA RECOMBINANT HUMAN
     Indication: AORTIC ANEURYSM RUPTURE
  2. NOVOSEVEN RT [Suspect]
     Active Substance: COAGULATION FACTOR VIIA RECOMBINANT HUMAN
     Indication: VAGINAL HAEMORRHAGE
     Dosage: UNK
     Route: 042

REACTIONS (3)
  - Postpartum haemorrhage [Fatal]
  - Aortic rupture [Fatal]
  - Vaginal haemorrhage [Fatal]
